FAERS Safety Report 9565223 (Version 1)
Quarter: 2013Q3

REPORT INFORMATION
  Report Type: Spontaneous
  Country: US (occurrence: US)
  Receive Date: 20130930
  Receipt Date: 20130930
  Transmission Date: 20140515
  Serious: No
  Sender: FDA-Public Use
  Company Number: US-VIIV HEALTHCARE LIMITED-A1027445A

PATIENT
  Age: 79 Year
  Sex: Male

DRUGS (3)
  1. EPZICOM [Suspect]
     Indication: HIV INFECTION
     Dosage: 1TAB PER DAY
     Route: 048
     Dates: start: 2008
  2. CORTISONE [Suspect]
     Indication: ARTHRITIS
     Route: 042
     Dates: start: 2011
  3. ISENTRESS [Concomitant]

REACTIONS (1)
  - Hallucination [Recovered/Resolved]
